FAERS Safety Report 8832592 (Version 1)
Quarter: 2012Q4

REPORT INFORMATION
  Report Type: 
  Country: US (occurrence: US)
  Receive Date: 20121010
  Receipt Date: 20121010
  Transmission Date: 20130627
  Serious: No
  Sender: FDA-Public Use
  Company Number: US-PFIZER INC-2012249290

PATIENT

DRUGS (1)
  1. GEODON [Suspect]
     Dosage: UNK
     Dates: end: 201210

REACTIONS (2)
  - Chest pain [Unknown]
  - Anxiety [Unknown]
